FAERS Safety Report 8841331 (Version 3)
Quarter: 2012Q4

REPORT INFORMATION
  Report Type: 
  Country: US (occurrence: US)
  Receive Date: 20121015
  Receipt Date: 20121207
  Transmission Date: 20130627
  Serious: Yes (Other)
  Sender: FDA-Public Use
  Company Number: US-PFIZER INC-2012251173

PATIENT
  Sex: Female

DRUGS (4)
  1. XALATAN [Suspect]
     Indication: GLAUCOMA
     Dosage: 1 drop 1x/day
     Dates: start: 2011
  2. PRAVASTATIN [Concomitant]
     Dosage: 80 mg
  3. AMLODIPINE [Concomitant]
     Indication: BLOOD PRESSURE HIGH
     Dosage: 5 mg
  4. COLESTID [Concomitant]
     Dosage: Unk

REACTIONS (3)
  - Blindness [Not Recovered/Not Resolved]
  - Glare [Not Recovered/Not Resolved]
  - Scotoma [Not Recovered/Not Resolved]
